FAERS Safety Report 21093973 (Version 2)
Quarter: 2022Q3

REPORT INFORMATION
  Report Type: Spontaneous
  Country: US (occurrence: US)
  Receive Date: 20220718
  Receipt Date: 20220809
  Transmission Date: 20221027
  Serious: Yes (Other)
  Sender: FDA-Public Use
  Company Number: US-BIOCODEX2-2022000739

PATIENT

DRUGS (6)
  1. DIACOMIT [Suspect]
     Active Substance: STIRIPENTOL
     Indication: Severe myoclonic epilepsy of infancy
     Dosage: 500MG, TAKE 10ML TWICE A DAY
     Route: 065
     Dates: start: 20220518
  2. DIACOMIT [Suspect]
     Active Substance: STIRIPENTOL
     Dosage: MIX EACH PACKET WITH 10ML OF WATER AND TAKE 10ML BY MOUTH TWICE A DAY (1 IN THE AM AND 1 AT BEDTIME)
     Route: 048
  3. MIRALAX [Suspect]
     Active Substance: POLYETHYLENE GLYCOL 3350
     Indication: Product used for unknown indication
     Dosage: UNK
     Route: 065
  4. EPIDIOLEX [Concomitant]
     Active Substance: CANNABIDIOL
     Indication: Product used for unknown indication
     Dosage: UNK
     Route: 065
     Dates: start: 20191030
  5. DIAZEPAM [Concomitant]
     Active Substance: DIAZEPAM
     Indication: Product used for unknown indication
     Dosage: PRN
     Route: 065
     Dates: start: 20090203
  6. NAYZILAM [Concomitant]
     Active Substance: MIDAZOLAM
     Indication: Product used for unknown indication
     Dosage: PRN
     Route: 065
     Dates: start: 20200305

REACTIONS (6)
  - Seizure [Not Recovered/Not Resolved]
  - Product dose omission issue [Unknown]
  - Drooling [Unknown]
  - Eating disorder [Unknown]
  - Product use in unapproved indication [Unknown]
  - Drug ineffective [Unknown]

NARRATIVE: CASE EVENT DATE: 19850101
